FAERS Safety Report 23205352 (Version 1)
Quarter: 2023Q4

REPORT INFORMATION
  Report Type: Report from Study
  Country: CN (occurrence: CN)
  Receive Date: 20231120
  Receipt Date: 20231120
  Transmission Date: 20240110
  Serious: Yes (Hospitalization)
  Sender: FDA-Public Use
  Company Number: CN-002147023-NVSC2023CN245692

PATIENT
  Sex: Male

DRUGS (1)
  1. LEQVIO [Suspect]
     Active Substance: INCLISIRAN SODIUM
     Indication: Hyperlipidaemia
     Dosage: 284 MG (AFTER THE FIRST ADMINISTRATIO N, THE DRUG  WAS GIVEN  AGAIN AT THE THIRD MONTH,  AND THEN TH
     Route: 058
     Dates: start: 20231021

REACTIONS (1)
  - Nasopharyngitis [Unknown]
